FAERS Safety Report 6464144-5 (Version None)
Quarter: 2009Q4

REPORT INFORMATION
  Report Type: 
  Country: None (occurrence: None)
  Receive Date: 20091130
  Receipt Date: 20091130
  Transmission Date: 20100525
  Serious: Yes (Death)
  Sender: FDA-Public Use
  Company Number: None

PATIENT
  Sex: Female
  Weight: 44.7 kg

DRUGS (1)
  1. ABRAXANE [Suspect]
     Indication: BREAST CANCER METASTATIC
     Dosage: 100 MG/M2 WEEKLY X3 IV
     Route: 042
     Dates: start: 20090925, end: 20090925

REACTIONS (2)
  - INTESTINAL PERFORATION [None]
  - OEDEMA PERIPHERAL [None]
